FAERS Safety Report 14011744 (Version 2)
Quarter: 2017Q3

REPORT INFORMATION
  Report Type: Spontaneous
  Country: US (occurrence: US)
  Receive Date: 20170926
  Receipt Date: 20170929
  Transmission Date: 20171128
  Serious: Yes (Life-Threatening, Hospitalization, Other)
  Sender: FDA-Public Use
  Company Number: PHHY2017US140584

PATIENT
  Age: 57 Year
  Sex: Female

DRUGS (8)
  1. TRAMADOL. [Suspect]
     Active Substance: TRAMADOL
     Indication: PAIN
     Route: 065
  2. LACTULOSE. [Concomitant]
     Active Substance: LACTULOSE
     Indication: HEPATIC ENCEPHALOPATHY
     Route: 065
  3. FLUCONAZOLE. [Interacting]
     Active Substance: FLUCONAZOLE
     Indication: URINARY TRACT INFECTION
     Dosage: 200 MG, QD
     Route: 065
  4. RIFAXIMIN [Concomitant]
     Active Substance: RIFAXIMIN
     Indication: HEPATIC ENCEPHALOPATHY
     Route: 065
  5. LORAZEPAM. [Concomitant]
     Active Substance: LORAZEPAM
     Indication: SEDATIVE THERAPY
     Dosage: 2 MG, UNK
     Route: 042
  6. LINEZOLID. [Interacting]
     Active Substance: LINEZOLID
     Indication: URINARY TRACT INFECTION
     Dosage: 600 MG, BID
     Route: 065
  7. CITALOPRAM [Interacting]
     Active Substance: CITALOPRAM HYDROBROMIDE
     Indication: DEPRESSION
     Route: 065
  8. PROPOFOL. [Concomitant]
     Active Substance: PROPOFOL
     Indication: SEDATIVE THERAPY
     Route: 041

REACTIONS (17)
  - Tremor [Recovered/Resolved]
  - Akathisia [Recovered/Resolved]
  - Muscle rigidity [Recovered/Resolved]
  - Drug interaction [Unknown]
  - Hyperreflexia [Recovered/Resolved]
  - Breath holding [Recovered/Resolved]
  - Abnormal behaviour [Recovered/Resolved]
  - Serotonin syndrome [Recovered/Resolved]
  - Dysarthria [Recovered/Resolved]
  - Hypoxia [Recovered/Resolved]
  - Mental status changes [Recovered/Resolved]
  - Diarrhoea [Recovered/Resolved]
  - Disorientation [Recovered/Resolved]
  - Respiratory failure [Recovered/Resolved]
  - Anxiety [Recovered/Resolved]
  - Somnolence [Recovered/Resolved]
  - Urinary tract infection [Recovered/Resolved]
